FAERS Safety Report 8917594 (Version 1)
Quarter: 2012Q4

REPORT INFORMATION
  Report Type: 
  Country: US (occurrence: US)
  Receive Date: 20121120
  Receipt Date: 20121120
  Transmission Date: 20130627
  Serious: No
  Sender: FDA-Public Use
  Company Number: US-TEVA-370967USA

PATIENT
  Sex: Male

DRUGS (14)
  1. NUVIGIL [Suspect]
     Indication: DISTURBANCE IN ATTENTION
     Dosage: QAM
     Route: 048
  2. NEFAZODONE [Concomitant]
     Dosage: QHS
     Route: 048
  3. SYNTHROID [Concomitant]
     Dosage: QAM
     Route: 048
  4. OMEPRAZOLE [Concomitant]
     Dosage: QAM
     Route: 048
  5. MELOXICAM [Concomitant]
     Dosage: QAM
     Route: 048
  6. METOPROLOL [Concomitant]
     Dosage: 100 Milligram Daily;
     Route: 048
  7. ADDERALL [Concomitant]
     Dosage: QAM
     Route: 048
  8. DOXAZOCIN [Concomitant]
     Dosage: QPM
     Route: 048
  9. ANDROGEL [Concomitant]
     Dosage: 400 Microgram Daily;
  10. CIALIS [Concomitant]
     Dosage: 5 Milligram Daily;
  11. RANITIDINE [Concomitant]
     Dosage: QAM
  12. OMEGA 3 [Concomitant]
     Dosage: daily
  13. B-COMPLEX [Concomitant]
     Route: 060
  14. VITAMINS [Concomitant]

REACTIONS (8)
  - Labyrinthitis [Not Recovered/Not Resolved]
  - Nervousness [Unknown]
  - Insomnia [Unknown]
  - Psychomotor hyperactivity [Unknown]
  - Headache [Not Recovered/Not Resolved]
  - Nausea [Not Recovered/Not Resolved]
  - Dizziness [Not Recovered/Not Resolved]
  - Off label use [Unknown]
